FAERS Safety Report 5305144-8 (Version None)
Quarter: 2007Q2

REPORT INFORMATION
  Report Type: 
  Country: None (occurrence: None)
  Receive Date: 20070417
  Receipt Date: 20070402
  Transmission Date: 20071010
  Serious: Yes (Hospitalization)
  Sender: FDA-Public Use
  Company Number: 2007SI002883

PATIENT
  Sex: Female

DRUGS (1)
  1. LORAZEPAM [Suspect]
     Indication: ANXIETY DISORDER
     Dosage: 1 MG; 3 TIMES A DAY; ORAL
     Route: 048
     Dates: end: 20070327

REACTIONS (8)
  - CATATONIA [None]
  - DIZZINESS [None]
  - DRUG EFFECT DECREASED [None]
  - DRUG INEFFECTIVE [None]
  - DYSPNOEA [None]
  - LETHARGY [None]
  - NAUSEA [None]
  - PHARMACEUTICAL PRODUCT COMPLAINT [None]
